FAERS Safety Report 4734771-1 (Version None)
Quarter: 2005Q3

REPORT INFORMATION
  Report Type: 
  Country: None (occurrence: None)
  Receive Date: 20050804
  Receipt Date: 20050726
  Transmission Date: 20060218
  Serious: Yes (Life-Threatening)
  Sender: FDA-Public Use
  Company Number: 2005-0164

PATIENT
  Age: 63 Year
  Sex: Male
  Weight: 67 kg

DRUGS (2)
  1. RANIPLEX [Suspect]
     Indication: OESOPHAGITIS ULCERATIVE
     Route: 048
     Dates: start: 20050625, end: 20050628
  2. OMEPRAZOLE [Suspect]
     Indication: OESOPHAGITIS ULCERATIVE
     Route: 048
     Dates: start: 20050625, end: 20050626

REACTIONS (8)
  - AGITATION [None]
  - BRADYCARDIA [None]
  - CARDIAC ARREST [None]
  - CARDIO-RESPIRATORY ARREST [None]
  - EPILEPSY [None]
  - SINOATRIAL BLOCK [None]
  - SINUS BRADYCARDIA [None]
  - SYNCOPE [None]
